FAERS Safety Report 21071130 (Version 6)
Quarter: 2024Q2

REPORT INFORMATION
  Report Type: Report from Study
  Country: US (occurrence: US)
  Receive Date: 20220712
  Receipt Date: 20240517
  Transmission Date: 20240715
  Serious: Yes (Hospitalization, Other)
  Sender: FDA-Public Use
  Company Number: US-SA-SAC20220711000860

PATIENT
  Age: 77 Year
  Sex: Female

DRUGS (1)
  1. ELIGLUSTAT [Suspect]
     Active Substance: ELIGLUSTAT
     Indication: Gaucher^s disease
     Dosage: 84 MG, BID
     Route: 048
     Dates: start: 20181224

REACTIONS (15)
  - Autoimmune disorder [Unknown]
  - Colitis microscopic [Recovering/Resolving]
  - Gastrointestinal disorder [Recovering/Resolving]
  - Clostridium difficile infection [Recovering/Resolving]
  - Clostridium test positive [Recovering/Resolving]
  - Hiatus hernia [Unknown]
  - Colitis [Unknown]
  - Hypergammaglobulinaemia benign monoclonal [Not Recovered/Not Resolved]
  - Giant cell arteritis [Unknown]
  - Fungal infection [Unknown]
  - Frequent bowel movements [Unknown]
  - Hepatic enzyme abnormal [Unknown]
  - Tooth disorder [Unknown]
  - Weight decreased [Not Recovered/Not Resolved]
  - Intentional dose omission [Unknown]

NARRATIVE: CASE EVENT DATE: 20220408
